FAERS Safety Report 7950188-0 (Version None)
Quarter: 2011Q4

REPORT INFORMATION
  Report Type: 
  Country: None (occurrence: None)
  Receive Date: 20111130
  Receipt Date: 20100615
  Transmission Date: 20120403
  Serious: Yes (Other)
  Sender: FDA-Public Use
  Company Number: PHHY2010JP092688

PATIENT
  Age: 83 Year
  Sex: Male

DRUGS (3)
  1. IMATINIB MESYLATE [Suspect]
     Indication: CHRONIC MYELOID LEUKAEMIA
  2. HYDROXYUREA [Concomitant]
     Indication: RENAL IMPAIRMENT
  3. PREDNISOLONE [Concomitant]
     Indication: RENAL IMPAIRMENT

REACTIONS (6)
  - RENAL TUBULAR DISORDER [None]
  - KIDNEY ENLARGEMENT [None]
  - RENAL FAILURE ACUTE [None]
  - OEDEMA [None]
  - CHROMOSOME ANALYSIS ABNORMAL [None]
  - HAEMOGLOBIN DECREASED [None]
